FAERS Safety Report 25238014 (Version 1)
Quarter: 2025Q2

REPORT INFORMATION
  Report Type: Spontaneous
  Country: US (occurrence: US)
  Receive Date: 20250425
  Receipt Date: 20250425
  Transmission Date: 20250717
  Serious: Yes (Death, Hospitalization, Other)
  Sender: CIPLA
  Company Number: US-CIPLA LTD.-2025US04816

PATIENT

DRUGS (2)
  1. RITONAVIR [Suspect]
     Active Substance: RITONAVIR
     Indication: COVID-19 treatment
     Route: 065
  2. NIRMATRELVIR [Suspect]
     Active Substance: NIRMATRELVIR
     Indication: COVID-19 treatment
     Route: 065

REACTIONS (3)
  - Drug level increased [Fatal]
  - Toxicity to various agents [Fatal]
  - Drug-induced liver injury [Fatal]
